FAERS Safety Report 9753515 (Version 2)
Quarter: 2014Q1

REPORT INFORMATION
  Report Type: Spontaneous
  Country: GB (occurrence: GB)
  Receive Date: 20131213
  Receipt Date: 20140128
  Transmission Date: 20141002
  Serious: Yes (Death)
  Sender: FDA-Public Use
  Company Number: GB-WATSON-2013-22822

PATIENT
  Age: 34 Year
  Sex: Male

DRUGS (3)
  1. DIAZEPAM (UNKNOWN) [Suspect]
     Indication: ANXIETY
     Dosage: 10 MG, UNKNOWN
     Route: 048
  2. ZYPREXA [Interacting]
     Indication: SCHIZOPHRENIA
     Dosage: 20 MG, UNKNOWN
     Route: 048
     Dates: start: 200808
  3. METHADONE [Interacting]
     Indication: PRODUCT USED FOR UNKNOWN INDICATION
     Dosage: UNK
     Route: 065

REACTIONS (2)
  - Sudden death [Fatal]
  - Drug interaction [Unknown]
